FAERS Safety Report 22016970 (Version 1)
Quarter: 2023Q1

REPORT INFORMATION
  Report Type: Report from Study
  Country: CA (occurrence: CA)
  Receive Date: 20230221
  Receipt Date: 20230221
  Transmission Date: 20230417
  Serious: Yes (Other)
  Sender: FDA-Public Use
  Company Number: CA-002147023-NVSC2023CA034394

PATIENT
  Sex: Male

DRUGS (5)
  1. ROSUVASTATIN [Suspect]
     Active Substance: ROSUVASTATIN
     Indication: Arteriosclerosis
     Dosage: UNK
     Route: 058
  2. EZETIMIBE [Suspect]
     Active Substance: EZETIMIBE
     Indication: Arteriosclerosis
     Dosage: UNK
     Route: 065
  3. PERINDOPRIL [Concomitant]
     Active Substance: PERINDOPRIL
     Indication: Product used for unknown indication
     Dosage: 1 DOSAGE FORM, QD
     Route: 065
  4. ASPIRIN [Concomitant]
     Active Substance: ASPIRIN
     Indication: Product used for unknown indication
     Dosage: 1 DOSAGE FORM, QD
     Route: 065
  5. CLOPIDOGREL [Concomitant]
     Active Substance: CLOPIDOGREL BISULFATE
     Indication: Product used for unknown indication
     Dosage: 1 DOSAGE FORM, QD
     Route: 065

REACTIONS (3)
  - Angina pectoris [Unknown]
  - Lipoprotein (a) increased [Unknown]
  - Alanine aminotransferase increased [Unknown]
